FAERS Safety Report 7315399-6 (Version None)
Quarter: 2011Q1

REPORT INFORMATION
  Report Type: 
  Country: None (occurrence: None)
  Receive Date: 20110225
  Receipt Date: 20110217
  Transmission Date: 20110831
  Serious: Yes (Hospitalization)
  Sender: FDA-Public Use
  Company Number: A0891852A

PATIENT
  Age: 66 Year
  Sex: Male

DRUGS (7)
  1. REMERON [Concomitant]
  2. AVODART [Concomitant]
  3. SEROQUEL [Concomitant]
  4. GLIPIZIDE [Concomitant]
  5. AVANDIA [Suspect]
     Route: 048
     Dates: start: 20050101, end: 20070101
  6. FLOMAX [Concomitant]
  7. CELEXA [Concomitant]

REACTIONS (4)
  - CEREBRAL THROMBOSIS [None]
  - CARDIOMEGALY [None]
  - CARDIAC FAILURE CONGESTIVE [None]
  - CEREBROVASCULAR ACCIDENT [None]
